FAERS Safety Report 16059161 (Version 1)
Quarter: 2019Q1

REPORT INFORMATION
  Report Type: Report from Study
  Country: IT (occurrence: IT)
  Receive Date: 20190311
  Receipt Date: 20190311
  Transmission Date: 20190418
  Serious: Yes (Hospitalization)
  Sender: FDA-Public Use
  Company Number: IT-PFIZER INC-2019102284

PATIENT
  Age: 30 Year
  Sex: Female

DRUGS (5)
  1. FELISON [Suspect]
     Active Substance: FLURAZEPAM MONOHYDROCHLORIDE
     Indication: BIPOLAR DISORDER
     Dosage: 30 DF, SINGLE
     Route: 048
     Dates: start: 20190215, end: 20190215
  2. TAVOR (LORAZEPAM) [Suspect]
     Active Substance: LORAZEPAM
     Indication: BIPOLAR DISORDER
     Dosage: 20 DF, SINGLE
     Route: 048
     Dates: start: 20190215, end: 20190215
  3. GABAPENTIN ABC [Suspect]
     Active Substance: GABAPENTIN
     Indication: BIPOLAR DISORDER
     Dosage: 25 DF, SINGLE
     Route: 048
     Dates: start: 20190215, end: 20190215
  4. HALOPERIDOL. [Suspect]
     Active Substance: HALOPERIDOL
     Indication: BIPOLAR DISORDER
     Dosage: 7 ML, SINGLE
     Route: 048
     Dates: start: 20190215, end: 20190215
  5. TAVOR (LORAZEPAM) [Suspect]
     Active Substance: LORAZEPAM
     Indication: BIPOLAR DISORDER
     Dosage: 4 DF, SINGLE
     Route: 048
     Dates: start: 20190215, end: 20190215

REACTIONS (3)
  - Electrocardiogram QT prolonged [Recovered/Resolved]
  - Toxicity to various agents [Recovered/Resolved]
  - Intentional self-injury [None]

NARRATIVE: CASE EVENT DATE: 20190215
